FAERS Safety Report 9472348 (Version 2)
Quarter: 2014Q1

REPORT INFORMATION
  Report Type: Report from Study
  Country: DE (occurrence: DE)
  Receive Date: 20130823
  Receipt Date: 20140117
  Transmission Date: 20141002
  Serious: Yes (Other)
  Sender: FDA-Public Use
  Company Number: DE-JNJFOC-20130807292

PATIENT
  Age: 57 Year
  Sex: Female
  Weight: 71 kg

DRUGS (2)
  1. STELARA [Suspect]
     Indication: PSORIASIS
     Route: 058
     Dates: start: 201002
  2. EUTHYROX [Concomitant]
     Dosage: 100 UNITS UNSPECIFIED
     Route: 048

REACTIONS (1)
  - Basal cell carcinoma [Recovered/Resolved]
